FAERS Safety Report 5779422-2 (Version None)
Quarter: 2008Q2

REPORT INFORMATION
  Report Type: 
  Country: None (occurrence: None)
  Receive Date: 20080619
  Receipt Date: 20071128
  Transmission Date: 20081010
  Serious: No
  Sender: FDA-Public Use
  Company Number: US-ASTRAZENECA-2007UW17123

PATIENT
  Age: 87 Year
  Sex: Female
  Weight: 60.5 kg

DRUGS (4)
  1. ATACAND [Suspect]
     Indication: PHAEOCHROMOCYTOMA
     Route: 048
     Dates: start: 20060901
  2. LABETALOL HCL [Suspect]
     Route: 048
     Dates: start: 20070901
  3. LABETALOL HCL [Suspect]
     Route: 048
  4. LABETALOL HCL [Suspect]
     Dosage: 50 MG BID WITH 25 MG QD
     Route: 048

REACTIONS (7)
  - ADRENAL NEOPLASM [None]
  - ASTHENIA [None]
  - FATIGUE [None]
  - HYPOAESTHESIA [None]
  - HYPOTENSION [None]
  - LIMB DISCOMFORT [None]
  - PAIN [None]
